FAERS Safety Report 23297057 (Version 1)
Quarter: 2023Q4

REPORT INFORMATION
  Report Type: Spontaneous
  Country: BR (occurrence: BR)
  Receive Date: 20231214
  Receipt Date: 20231214
  Transmission Date: 20240110
  Serious: Yes (Other)
  Sender: FDA-Public Use
  Company Number: BR-PFIZER INC-202300439696

PATIENT
  Age: 69 Year
  Sex: Male

DRUGS (1)
  1. DESVENLAFAXINE SUCCINATE [Suspect]
     Active Substance: DESVENLAFAXINE SUCCINATE
     Dosage: UNK
     Dates: start: 202309

REACTIONS (3)
  - Condition aggravated [Unknown]
  - Faecaloma [Unknown]
  - Constipation [Unknown]

NARRATIVE: CASE EVENT DATE: 20231101
